FAERS Safety Report 23756410 (Version 2)
Quarter: 2024Q2

REPORT INFORMATION
  Report Type: Spontaneous
  Country: US (occurrence: US)
  Receive Date: 20240418
  Receipt Date: 20240425
  Transmission Date: 20240716
  Serious: No
  Sender: FDA-Public Use
  Company Number: US-SANOFI-02015492

PATIENT
  Age: 27 Year
  Sex: Male

DRUGS (4)
  1. DUPIXENT [Suspect]
     Active Substance: DUPILUMAB
     Indication: Eosinophilic oesophagitis
     Dosage: 300 MG, QW
     Dates: start: 202311
  2. GAS-X [Concomitant]
     Active Substance: DIMETHICONE
  3. FIBER [Concomitant]
  4. FLOVENT [Concomitant]
     Active Substance: FLUTICASONE PROPIONATE

REACTIONS (5)
  - Flatulence [Recovering/Resolving]
  - Constipation [Recovering/Resolving]
  - Rectal prolapse [Unknown]
  - Therapeutic response shortened [Unknown]
  - Product preparation error [Unknown]

NARRATIVE: CASE EVENT DATE: 20240301
